FAERS Safety Report 5498347-3 (Version None)
Quarter: 2007Q4

REPORT INFORMATION
  Report Type: 
  Country: None (occurrence: None)
  Receive Date: 20071025
  Receipt Date: 20070503
  Transmission Date: 20080405
  Serious: Yes (Hospitalization)
  Sender: FDA-Public Use
  Company Number: A0649882A

PATIENT
  Age: 42 Year
  Sex: Male

DRUGS (11)
  1. ADVAIR DISKUS 100/50 [Suspect]
     Indication: ASTHMA
     Dosage: 1PUFF TWICE PER DAY
     Route: 055
     Dates: start: 20040101, end: 20070101
  2. CORTISONE ACETATE [Concomitant]
  3. EFFEXOR XR [Concomitant]
  4. VICODIN ES [Concomitant]
  5. TOPAMAX [Concomitant]
  6. LUNESTA [Concomitant]
  7. ROZEREM [Concomitant]
  8. SEROQUEL [Concomitant]
  9. VALIUM [Concomitant]
  10. BACLOFEN [Concomitant]
  11. SKELAXIN [Concomitant]

REACTIONS (2)
  - DYSPNOEA [None]
  - PNEUMONIA [None]
